FAERS Safety Report 22310755 (Version 1)
Quarter: 2023Q2

REPORT INFORMATION
  Report Type: Report from Study
  Country: DE (occurrence: None)
  Receive Date: 20230511
  Receipt Date: 20230511
  Transmission Date: 20230721
  Serious: Yes (Other)
  Sender: FDA-Public Use
  Company Number: 2023A107570

PATIENT

DRUGS (2)
  1. FULVESTRANT [Suspect]
     Active Substance: FULVESTRANT
     Indication: Endometrial adenocarcinoma
     Route: 030
  2. ALPELISIB [Suspect]
     Active Substance: ALPELISIB
     Indication: Cholangiocarcinoma

REACTIONS (1)
  - Hyperglycaemia [Unknown]
